FAERS Safety Report 15065008 (Version 1)
Quarter: 2018Q2

REPORT INFORMATION
  Report Type: Spontaneous
  Country: FI (occurrence: FI)
  Receive Date: 20180626
  Receipt Date: 20180626
  Transmission Date: 20180711
  Serious: Yes (Hospitalization, Other)
  Sender: FDA-Public Use
  Company Number: FI-AMGEN-FINSP2018084114

PATIENT
  Age: 5 Year
  Sex: Female

DRUGS (4)
  1. CALCIUM [Concomitant]
     Active Substance: CALCIUM
     Dosage: 500 MG, UNK
  2. XGEVA [Suspect]
     Active Substance: DENOSUMAB
     Indication: XANTHOGRANULOMA
     Dosage: 120 MG, UNK
     Route: 058
  3. MAGNESIUM [Concomitant]
     Active Substance: MAGNESIUM
     Dosage: 125 MG, UNK
  4. VITAMIN D [Concomitant]
     Active Substance: CHOLECALCIFEROL
     Dosage: UNK

REACTIONS (3)
  - Off label use [Unknown]
  - Hypercalcaemia [Recovered/Resolved]
  - Xanthogranuloma [Recovered/Resolved]
